FAERS Safety Report 20054767 (Version 1)
Quarter: 2021Q4

REPORT INFORMATION
  Report Type: Spontaneous
  Country: US (occurrence: None)
  Receive Date: 20211110
  Receipt Date: 20211110
  Transmission Date: 20220303
  Serious: Yes (Hospitalization)
  Sender: FDA-Public Use
  Company Number: None

PATIENT
  Age: 68 Year
  Sex: Male
  Weight: 109.3 kg

DRUGS (1)
  1. CISPLATIN [Suspect]
     Active Substance: CISPLATIN
     Indication: Product used for unknown indication
     Dates: end: 20210830

REACTIONS (17)
  - Platelet count decreased [None]
  - Leukocytosis [None]
  - White blood cell count increased [None]
  - Stomatitis [None]
  - Eating disorder [None]
  - Fall [None]
  - Arthralgia [None]
  - Dizziness postural [None]
  - Syncope [None]
  - Asthenia [None]
  - Dizziness [None]
  - Loss of consciousness [None]
  - Blood creatinine increased [None]
  - Haemoglobin decreased [None]
  - Bundle branch block right [None]
  - Supraventricular tachycardia [None]
  - Orthostatic hypotension [None]

NARRATIVE: CASE EVENT DATE: 20211016
